FAERS Safety Report 10248161 (Version 3)
Quarter: 2015Q1

REPORT INFORMATION
  Report Type: Spontaneous
  Country: DE (occurrence: DE)
  Receive Date: 20140619
  Receipt Date: 20140619
  Transmission Date: 20150720
  Serious: Yes (Other)
  Sender: FDA-Public Use
  Company Number: DE-MYLANLABS-2014S1013541

PATIENT
  Age: 54 Year
  Sex: Female

DRUGS (4)
  1. SPIRONOLACTON [Interacting]
     Active Substance: SPIRONOLACTONE
     Route: 048
  2. FUMADERM [Interacting]
     Active Substance: DIMETHYL FUMARATE\ETHYL FUMARATE
     Route: 048
  3. CARVEDILOL. [Interacting]
     Active Substance: CARVEDILOL
     Route: 048
  4. RAMIPRIL. [Suspect]
     Active Substance: RAMIPRIL
     Route: 048

REACTIONS (3)
  - Vasodilatation [Not Recovered/Not Resolved]
  - Diarrhoea [Not Recovered/Not Resolved]
  - Drug interaction [Not Recovered/Not Resolved]
